FAERS Safety Report 7445022-1 (Version None)
Quarter: 2011Q2

REPORT INFORMATION
  Report Type: 
  Country: None (occurrence: None)
  Receive Date: 20110426
  Receipt Date: 20110426
  Transmission Date: 20111010
  Serious: Yes (Congenital Anomaly)
  Sender: FDA-Public Use
  Company Number: None

PATIENT
  Age: 3 Year
  Sex: Female

DRUGS (2)
  1. PROCARDIA [Suspect]
     Indication: PREMATURE LABOUR
     Dosage: 20 MG EVERY 4 HRS PO
     Route: 048
     Dates: start: 19960603, end: 19960710
  2. VISTARIL [Suspect]
     Indication: PREMATURE LABOUR
     Dosage: 100 MG PRN PO
     Route: 048
     Dates: start: 19960415, end: 19960415

REACTIONS (15)
  - OBSESSIVE-COMPULSIVE DISORDER [None]
  - PAPILLOEDEMA [None]
  - INFERTILITY FEMALE [None]
  - ADNEXA UTERI PAIN [None]
  - HYPOTHYROIDISM [None]
  - BIPOLAR DISORDER [None]
  - INCONTINENCE [None]
  - URINARY TRACT INFECTION [None]
  - ATTENTION DEFICIT/HYPERACTIVITY DISORDER [None]
  - REPRODUCTIVE TRACT DISORDER [None]
  - CERVIX DISORDER [None]
  - DRUG EXPOSURE DURING PREGNANCY [None]
  - SOLITARY KIDNEY [None]
  - FEELING ABNORMAL [None]
  - MATERNAL DRUGS AFFECTING FOETUS [None]
